FAERS Safety Report 6180156-3 (Version None)
Quarter: 2009Q2

REPORT INFORMATION
  Report Type: 
  Country: None (occurrence: None)
  Receive Date: 20090501
  Receipt Date: 20090424
  Transmission Date: 20091009
  Serious: Yes (Other)
  Sender: FDA-Public Use
  Company Number: 09US001003

PATIENT
  Age: 61 Year
  Sex: Female
  Weight: 193.7 kg

DRUGS (7)
  1. NYSTATIN [Suspect]
     Indication: SKIN CANDIDA
     Dosage: ONCE DAILY, PRN, TOPICAL; TWICE DAILY, PRN, TOPICAL
     Route: 061
     Dates: start: 20070101, end: 20090201
  2. NYSTATIN [Suspect]
     Indication: SKIN CANDIDA
     Dosage: ONCE DAILY, PRN, TOPICAL; TWICE DAILY, PRN, TOPICAL
     Route: 061
     Dates: start: 20090201
  3. HYDROCHLOROTHIAZIDE [Concomitant]
  4. ZOLOFT [Concomitant]
  5. PRILOSEC [Concomitant]
  6. URSODIOL (URSODEOXYCHOLIC) [Concomitant]
  7. ASCORBIC ACID [Concomitant]

REACTIONS (4)
  - CONDITION AGGRAVATED [None]
  - DRUG EFFECT DECREASED [None]
  - SKIN CANDIDA [None]
  - TYPE 2 DIABETES MELLITUS [None]
